FAERS Safety Report 18506484 (Version 3)
Quarter: 2021Q1

REPORT INFORMATION
  Report Type: Spontaneous
  Country: IE (occurrence: IE)
  Receive Date: 20201116
  Receipt Date: 20210111
  Transmission Date: 20210419
  Serious: Yes (Other)
  Sender: FDA-Public Use
  Company Number: IE-TEVA-2020-IE-1848074

PATIENT
  Age: 42 Year
  Sex: Female

DRUGS (10)
  1. GAVISCON LIQUID ? PEPPERMINT FLAVOUR [Concomitant]
     Dosage: 15 ML DAILY;
  2. OMEPRAZOLE. [Concomitant]
     Active Substance: OMEPRAZOLE
  3. AJOVY [Suspect]
     Active Substance: FREMANEZUMAB-VFRM
     Route: 065
     Dates: start: 20201015
  4. ELTROXIN 25 MICROGRAM TABLETS [Concomitant]
     Dosage: 175 MICROGRAM MONDAY ? FRIDAY 100 MICROGRAM SATURDAY ? SUNDAY
  5. AJOVY [Suspect]
     Active Substance: FREMANEZUMAB-VFRM
     Route: 065
     Dates: start: 202009
  6. ELTROXIN 25 MICROGRAM TABLETS [Concomitant]
     Dosage: 175 MICROGRAMS MONDAY ? FRIDAY 100 MICROGRAM SATURDAY ? SUNDAY
  7. AJOVY [Suspect]
     Active Substance: FREMANEZUMAB-VFRM
     Indication: MIGRAINE
     Dosage: DOSAGE: ONCE PER MONTH
     Route: 058
     Dates: start: 201912
  8. ESOMEPRAZOLE. [Concomitant]
     Active Substance: ESOMEPRAZOLE MAGNESIUM
     Indication: GASTROINTESTINAL DISORDER PROPHYLAXIS
     Dosage: 80 MILLIGRAM DAILY;
  9. MOTILIUM RX [Concomitant]
  10. MAGNESIUM (G) [Concomitant]
     Active Substance: MAGNESIUM

REACTIONS (4)
  - Palpitations [Recovered/Resolved]
  - Dizziness [Recovered/Resolved]
  - Nausea [Recovered/Resolved]
  - Dyspnoea [Recovered/Resolved]

NARRATIVE: CASE EVENT DATE: 201912
